FAERS Safety Report 18722818 (Version 1)
Quarter: 2021Q1

REPORT INFORMATION
  Report Type: Spontaneous
  Country: US (occurrence: US)
  Receive Date: 20210111
  Receipt Date: 20210111
  Transmission Date: 20210419
  Serious: Yes (Hospitalization)
  Sender: FDA-Public Use
  Company Number: US-PROCTER_AND_GAMBLE-GS20151625

PATIENT

DRUGS (1)
  1. OLAY SPF/UV PROTECTION NOS [Suspect]
     Active Substance: AVOBENZONE\HOMOSALATE\OCTINOXATE\OCTISALATE\OCTOCRYLENE\OXYBENZONE\TITANIUM DIOXIDE\ZINC OXIDE
     Dosage: UNK
     Route: 061
     Dates: start: 20201217

REACTIONS (5)
  - Swelling face [Unknown]
  - Skin disorder [Unknown]
  - Erythema [Unknown]
  - Pain of skin [Unknown]
  - Skin irritation [Unknown]

NARRATIVE: CASE EVENT DATE: 202012
